FAERS Safety Report 4536883-4 (Version None)
Quarter: 2004Q4

REPORT INFORMATION
  Report Type: 
  Country: None (occurrence: None)
  Receive Date: 20041223
  Receipt Date: 20041217
  Transmission Date: 20050328
  Serious: Yes (Hospitalization)
  Sender: FDA-Public Use
  Company Number: JP-GLAXOSMITHKLINE-B0362234A

PATIENT
  Age: 77 Year
  Sex: Male

DRUGS (1)
  1. MODACIN [Suspect]
     Indication: PNEUMONIA
     Dosage: 2G PER DAY
     Route: 042
     Dates: start: 20041029, end: 20041029

REACTIONS (1)
  - SHOCK [None]
